FAERS Safety Report 18677170 (Version 3)
Quarter: 2021Q1

REPORT INFORMATION
  Report Type: Report from Study
  Country: IT (occurrence: IT)
  Receive Date: 20201229
  Receipt Date: 20210115
  Transmission Date: 20210419
  Serious: Yes (Hospitalization)
  Sender: FDA-Public Use
  Company Number: IT-SECURA BIO, INC.-2020IT008505

PATIENT
  Sex: Male

DRUGS (20)
  1. ALLOPURINOL. [Concomitant]
     Active Substance: ALLOPURINOL
     Indication: PROPHYLAXIS
     Dosage: 300 MG, DAILY
     Route: 048
     Dates: start: 20200805, end: 20200901
  2. SOLDESAM [Concomitant]
     Active Substance: DEXAMETHASONE
     Dosage: 35 UNK, DAILY
     Route: 048
     Dates: start: 20200901, end: 20200905
  3. URBASON [Concomitant]
     Active Substance: METHYLPREDNISOLONE
     Indication: PYREXIA
     Dosage: 40 MG, BID
     Route: 042
     Dates: start: 20201218, end: 20201222
  4. URBASON [Concomitant]
     Active Substance: METHYLPREDNISOLONE
     Indication: OROPHARYNGEAL PAIN
  5. SOLDESAM [Concomitant]
     Active Substance: DEXAMETHASONE
     Dosage: 8 UNK, DAILY
     Route: 030
     Dates: start: 20201222, end: 20210105
  6. SOLDESAM [Concomitant]
     Active Substance: DEXAMETHASONE
     Dosage: 30 UNK, DAILY
     Route: 048
     Dates: start: 20200906, end: 20200910
  7. SOLDESAM [Concomitant]
     Active Substance: DEXAMETHASONE
     Dosage: 15 UNK, DAILY
     Route: 048
     Dates: start: 20200921, end: 20200925
  8. CEFIXORAL [Concomitant]
     Active Substance: CEFIXIME
     Indication: OROPHARYNGEAL PAIN
  9. OMEPRAZOLE. [Concomitant]
     Active Substance: OMEPRAZOLE
     Indication: PROPHYLAXIS
     Dosage: 20 MG, DAILY
     Route: 048
     Dates: start: 20200805
  10. ADENURIC [Concomitant]
     Active Substance: FEBUXOSTAT
     Indication: PROPHYLAXIS
  11. SOLDESAM [Concomitant]
     Active Substance: DEXAMETHASONE
     Dosage: 10 UNK, DAILY
     Route: 048
     Dates: start: 20200926, end: 20200929
  12. SOLDESAM [Concomitant]
     Active Substance: DEXAMETHASONE
     Dosage: 4 UNK, DAILY
     Route: 030
     Dates: start: 20210105
  13. BACTRIM [Concomitant]
     Active Substance: SULFAMETHOXAZOLE\TRIMETHOPRIM
     Indication: PRODUCT USED FOR UNKNOWN INDICATION
     Dosage: 960 MG, TID
     Route: 048
     Dates: start: 20201218, end: 20201222
  14. SOLDESAM [Concomitant]
     Active Substance: DEXAMETHASONE
     Dosage: 25 UNK, DAILY
     Route: 048
     Dates: start: 20200911, end: 20200915
  15. IPI?145 [Suspect]
     Active Substance: DUVELISIB
     Indication: PERIPHERAL T-CELL LYMPHOMA UNSPECIFIED
     Dosage: 25 MG, BID
     Route: 048
     Dates: start: 20200901, end: 20201211
  16. ACICLOVIR [Concomitant]
     Active Substance: ACYCLOVIR
     Indication: PROPHYLAXIS
     Dosage: 400 MG, BID
     Dates: start: 20200805
  17. SOLDESAM [Concomitant]
     Active Substance: DEXAMETHASONE
     Dosage: 40 UNK, DAILY
     Route: 048
     Dates: start: 20200825, end: 20200831
  18. SOLDESAM [Concomitant]
     Active Substance: DEXAMETHASONE
     Dosage: 20 UNK, DAILY
     Route: 048
     Dates: start: 20200916, end: 20200920
  19. LEVOXACIN [Concomitant]
     Active Substance: LEVOFLOXACIN
     Indication: PROPHYLAXIS
     Dosage: 500 MG, BID
     Route: 048
     Dates: start: 20200811, end: 20200817
  20. SOLDESAM [Concomitant]
     Active Substance: DEXAMETHASONE
     Indication: PROPHYLAXIS
     Dosage: 45 UNK, DAILY
     Route: 048
     Dates: start: 20200806, end: 20200824

REACTIONS (1)
  - Febrile neutropenia [Recovered/Resolved]

NARRATIVE: CASE EVENT DATE: 20201215
